FAERS Safety Report 9263970 (Version 3)
Quarter: 2014Q4

REPORT INFORMATION
  Report Type: Spontaneous
  Country: US (occurrence: US)
  Receive Date: 20130430
  Receipt Date: 20141006
  Transmission Date: 20150529
  Serious: Yes (Other)
  Sender: FDA-Public Use
  Company Number: US-009507513-1304USA015584

PATIENT
  Sex: Female
  Weight: 72.11 kg

DRUGS (2)
  1. NUVARING [Suspect]
     Active Substance: ETHINYL ESTRADIOL\ETONOGESTREL
     Dosage: UNK
     Route: 067
     Dates: start: 2006, end: 200903
  2. NUVARING [Suspect]
     Active Substance: ETHINYL ESTRADIOL\ETONOGESTREL
     Indication: CONTRACEPTION
     Dosage: UNK
     Route: 067
     Dates: start: 20091215

REACTIONS (7)
  - Deep vein thrombosis [Unknown]
  - Chlamydial infection [Recovered/Resolved]
  - Hypercoagulation [Unknown]
  - Cerebrovascular accident [Unknown]
  - Migraine [Unknown]
  - Cerebral artery embolism [Unknown]
  - Emotional disorder [Unknown]

NARRATIVE: CASE EVENT DATE: 200912
